FAERS Safety Report 4963759-0 (Version None)
Quarter: 2006Q1

REPORT INFORMATION
  Report Type: 
  Country: None (occurrence: None)
  Receive Date: 20060330
  Receipt Date: 20060323
  Transmission Date: 20060701
  Serious: Yes (Other)
  Sender: FDA-Public Use
  Company Number: S06-GER-01029-01

PATIENT
  Age: 75 Year
  Sex: Female

DRUGS (7)
  1. CIPRALEX (ESCITALOPRAM) [Suspect]
     Dosage: 10 MG QD PO
     Route: 048
     Dates: start: 20051207, end: 20051220
  2. CIPRALEX (ESCITALOPRAM) [Suspect]
     Dosage: 10 MG QD PO
     Route: 048
     Dates: start: 20060101, end: 20060101
  3. VALPROATE SODIUM [Concomitant]
  4. PANTOPRAZOLE SODIUM [Concomitant]
  5. CIPRALEX (ESCITALOPRAM) [Suspect]
     Dosage: 20 MG QD PO
     Route: 048
     Dates: start: 20060101
  6. DIPIPERON (PIPAMPERONE) [Suspect]
     Dosage: 25 MG QD PO
     Route: 048
     Dates: start: 20051128, end: 20051215
  7. DIPIPERON (PIPAMPERONE) [Suspect]
     Dosage: 50 MG QD PO
     Route: 048
     Dates: start: 20051216

REACTIONS (6)
  - BIFASCICULAR BLOCK [None]
  - BUNDLE BRANCH BLOCK LEFT [None]
  - BUNDLE BRANCH BLOCK RIGHT [None]
  - CORONARY ARTERY DISEASE [None]
  - DEPRESSION [None]
  - TREATMENT NONCOMPLIANCE [None]
